FAERS Safety Report 9242043 (Version 3)
Quarter: 2013Q2

REPORT INFORMATION
  Report Type: Report from Study
  Country: BR (occurrence: BR)
  Receive Date: 20130419
  Receipt Date: 20130624
  Transmission Date: 20140414
  Serious: Yes (Hospitalization)
  Sender: FDA-Public Use
  Company Number: BR-ROCHE-1216251

PATIENT
  Sex: Female
  Weight: 83 kg

DRUGS (4)
  1. ACTEMRA [Suspect]
     Indication: RHEUMATOID ARTHRITIS
     Dosage: LAST INFUSION RECEIVED ON 05/JUL/2013
     Route: 042
     Dates: start: 20120911
  2. PREDNISONE [Concomitant]
  3. LOSARTAN [Concomitant]
  4. METHOTREXATE [Concomitant]

REACTIONS (2)
  - Arthropathy [Recovering/Resolving]
  - Urinary tract infection [Recovered/Resolved]
